FAERS Safety Report 8788704 (Version 2)
Quarter: 2013Q3

REPORT INFORMATION
  Report Type: Spontaneous
  Country: DE (occurrence: DE)
  Receive Date: 20120914
  Receipt Date: 20130830
  Transmission Date: 20140515
  Serious: Yes (Other)
  Sender: FDA-Public Use
  Company Number: PHHY2012DE079543

PATIENT
  Sex: Male

DRUGS (1)
  1. RITALIN [Suspect]
     Indication: ATTENTION DEFICIT/HYPERACTIVITY DISORDER
     Dosage: 10 MG IN MORNING, 5 MG AT NOON
     Route: 048
     Dates: start: 20110826

REACTIONS (2)
  - Phobia [Recovered/Resolved]
  - Anxiety [Recovering/Resolving]
